FAERS Safety Report 9888069 (Version 3)
Quarter: 2014Q1

REPORT INFORMATION
  Report Type: Spontaneous
  Country: JP (occurrence: JP)
  Receive Date: 20140211
  Receipt Date: 20140225
  Transmission Date: 20141002
  Serious: Yes (Life-Threatening, Hospitalization)
  Sender: FDA-Public Use
  Company Number: JP-NOVOPROD-394397

PATIENT
  Age: 82 Year
  Sex: Female
  Weight: 35 kg

DRUGS (19)
  1. VICTOZA HIKACHU INJECTION [Suspect]
     Indication: TYPE 2 DIABETES MELLITUS
     Dosage: 0.9 MG
     Route: 058
     Dates: start: 2011, end: 20131128
  2. AMARYL [Suspect]
     Indication: TYPE 2 DIABETES MELLITUS
     Dosage: 1 MG, QD
     Route: 048
     Dates: end: 20131201
  3. SIGMART [Suspect]
     Indication: ANGINA PECTORIS
     Dosage: 15 MG
     Route: 048
  4. MECOBAMIDE [Suspect]
     Indication: DIABETIC NEUROPATHY
     Dosage: UNK ?G, UNK
     Route: 048
  5. MAGNESIUM OXIDE [Suspect]
     Indication: CONSTIPATION
     Dosage: 750 MG
     Route: 048
     Dates: end: 201312
  6. SARPOGRELATE HYDROCHLORIDE [Suspect]
     Indication: PAIN IN EXTREMITY
     Dosage: 300 MG
     Route: 048
     Dates: end: 20131206
  7. CERCINE [Suspect]
     Indication: INSOMNIA
     Dosage: 2 MG
     Route: 048
  8. SOLDOL [Suspect]
     Indication: CONSTIPATION
     Dosage: 36MG
     Route: 048
  9. THREENOFEN [Suspect]
     Indication: BACK PAIN
     Dosage: 60MG
     Route: 048
  10. REBAMIPIDE [Suspect]
     Indication: GASTRIC ULCER
     Dosage: 100MG
     Route: 048
  11. THYRADIN S [Suspect]
     Indication: HYPOTHYROIDISM
     Dosage: 50 MICROGRAM
     Route: 048
  12. MICARDIS [Suspect]
     Indication: HYPERTENSION
     Dosage: 40 MG
     Route: 048
     Dates: end: 20131224
  13. MOBIC [Suspect]
     Indication: BACK PAIN
     Dosage: 10 MG
     Route: 048
  14. DONEPEZIL HYDROCHLORIDE [Suspect]
     Indication: DEMENTIA
     Dosage: 5 MG
     Route: 048
  15. FUROSEMIDE [Suspect]
     Indication: HYPERTENSION
     Dosage: 10 MG
     Route: 048
  16. FERROMIA [Suspect]
     Indication: ANAEMIA
     Dosage: 50MG
     Route: 048
  17. AMLODIPINE [Suspect]
     Indication: HYPERTENSION
     Dosage: 2.5MG
     Route: 048
  18. TAKEPRON [Suspect]
     Indication: GASTRIC ULCER
     Dosage: 30MG
     Route: 048
  19. WARKMIN [Suspect]
     Indication: OSTEOPOROSIS
     Dosage: 0.50 MICRO GRAM
     Route: 048
     Dates: end: 20131224

REACTIONS (1)
  - Pancreatic carcinoma stage III [Not Recovered/Not Resolved]
